FAERS Safety Report 8591450-0 (Version None)
Quarter: 2012Q3

REPORT INFORMATION
  Report Type: 
  Country: None (occurrence: None)
  Receive Date: 20120801
  Receipt Date: 20120720
  Transmission Date: 20120928
  Serious: Yes (Hospitalization)
  Sender: FDA-Public Use
  Company Number: 2012AP002257

PATIENT
  Age: 19 Year
  Sex: Female

DRUGS (3)
  1. DIVALPROEX SODIUM [Suspect]
     Indication: BIPOLAR DISORDER
     Dosage: 1500 MG;QD
  2. CLONAZEPAM [Suspect]
     Indication: ANXIETY
     Dosage: 0.5 MG;BID
  3. CLONAZEPAM [Suspect]
     Indication: OFF LABEL USE
     Dosage: 0.5 MG;BID

REACTIONS (3)
  - OFF LABEL USE [None]
  - DRUG INTERACTION [None]
  - HYPERAMMONAEMIC ENCEPHALOPATHY [None]
